FAERS Safety Report 4883840-4 (Version None)
Quarter: 2006Q1

REPORT INFORMATION
  Report Type: 
  Country: None (occurrence: None)
  Receive Date: 20060112
  Receipt Date: 20051228
  Transmission Date: 20060701
  Serious: Yes (Hospitalization)
  Sender: FDA-Public Use
  Company Number: GBR-2005-0002047

PATIENT
  Age: 71 Year
  Sex: Female

DRUGS (6)
  1. MORPHINE SULFATE [Suspect]
     Dosage: 100 MG, DAILY, ORAL
     Route: 048
     Dates: end: 20051103
  2. COD EFFERALGAN (CODEINE, PARACETAMOL) [Suspect]
     Dosage: ORAL
     Route: 048
     Dates: end: 20051103
  3. SULFARLEM (ANETHOLE TRITHIONE) [Suspect]
     Dosage: 3 UNIT, DAILY, ORAL
     Route: 048
     Dates: end: 20051103
  4. TANAKAN (GINKGO BILOBA EXTRACT) [Suspect]
     Dosage: 3 UNIT, DAILY, ORAL
     Route: 048
     Dates: end: 20051104
  5. LEXOMIL (BROMAZEPAM) [Suspect]
     Dosage: ORAL
     Route: 048
  6. LANZOR (LANSOPRAZOLE) [Suspect]
     Dosage: 1 UNIT, DAILY, ORAL
     Route: 048

REACTIONS (3)
  - ACUTE RESPIRATORY DISTRESS SYNDROME [None]
  - CONFUSIONAL STATE [None]
  - SOMNOLENCE [None]
